FAERS Safety Report 6662456-3 (Version None)
Quarter: 2010Q1

REPORT INFORMATION
  Report Type: 
  Country: None (occurrence: None)
  Receive Date: 20100329
  Receipt Date: 20100315
  Transmission Date: 20100710
  Serious: Yes (Hospitalization)
  Sender: FDA-Public Use
  Company Number: RB-04691-2010

PATIENT
  Sex: Male

DRUGS (3)
  1. SUBUTEX [Suspect]
     Indication: DRUG DEPENDENCE
     Dosage: TAPERING DOSES TO 2 MG TRANSPLACENTAL
     Route: 064
     Dates: start: 20090824, end: 20100219
  2. ZOLOFT [Suspect]
     Indication: DEPRESSION
     Dosage: 100 MG QD TRANSPLACENTAL
     Route: 064
     Dates: start: 20090928, end: 20100101
  3. PHENERGAN [Suspect]
     Indication: NAUSEA
     Dosage: 50 MG TRANSPLACENTAL
     Route: 064
     Dates: start: 20091002, end: 20091211

REACTIONS (5)
  - CAESAREAN SECTION [None]
  - DYSPNOEA [None]
  - MATERNAL DRUGS AFFECTING FOETUS [None]
  - PREMATURE LABOUR [None]
  - RESPIRATORY DISORDER NEONATAL [None]
